FAERS Safety Report 7677064-5 (Version None)
Quarter: 2011Q3

REPORT INFORMATION
  Report Type: 
  Country: None (occurrence: None)
  Receive Date: 20110811
  Receipt Date: 20110729
  Transmission Date: 20111222
  Serious: Yes (Other)
  Sender: FDA-Public Use
  Company Number: ES-ELI_LILLY_AND_COMPANY-ES201108000049

PATIENT
  Sex: Female

DRUGS (12)
  1. DIACEPAN [Concomitant]
     Indication: MENTAL DISORDER
     Dosage: 3 DF, QD
     Route: 048
  2. ENALAPRIL MALEATE [Concomitant]
     Indication: HYPERTENSION
     Dosage: 2 DF, QD
     Route: 048
  3. CALCIUM CARBONATE [Concomitant]
     Indication: OSTEOPOROSIS
     Dosage: 2 DF, QD
     Route: 048
  4. OMEPRAZOLE [Concomitant]
     Indication: ABDOMINAL DISCOMFORT
     Dosage: 1 DF, QD
     Route: 048
  5. CITALOPRAM [Concomitant]
     Indication: MENTAL DISORDER
     Dosage: 1 DF, QD
     Route: 048
  6. SUMIAL [Concomitant]
     Indication: MENTAL DISORDER
     Dosage: 2 DF, QD
     Route: 048
  7. MIRTAZAPINE [Concomitant]
     Indication: MENTAL DISORDER
     Dosage: 3 DF, QD
     Route: 048
  8. IBUPROFENO [Concomitant]
     Indication: PAIN
     Dosage: UNK, PRN
     Route: 048
  9. ACETAMINOPHEN [Concomitant]
     Indication: PAIN
     Dosage: UNK, PRN
     Route: 048
  10. ENOXAPARIN SODIUM [Concomitant]
     Indication: THERAPEUTIC PROCEDURE
     Dosage: 1 DF, QD
     Route: 058
     Dates: start: 20110723
  11. FORTEO [Suspect]
     Indication: OSTEOPOROSIS
     Dosage: 20 UG, QD
     Route: 058
     Dates: start: 20100615
  12. NOLOTIL [Concomitant]
     Indication: PAIN
     Dosage: UNK, PRN
     Route: 048

REACTIONS (4)
  - WEIGHT INCREASED [None]
  - PATELLA FRACTURE [None]
  - FALL [None]
  - GENERALISED OEDEMA [None]
